FAERS Safety Report 5707593-2 (Version None)
Quarter: 2008Q2

REPORT INFORMATION
  Report Type: 
  Country: None (occurrence: None)
  Receive Date: 20080416
  Receipt Date: 20080407
  Transmission Date: 20081010
  Serious: Yes (Life-Threatening, Hospitalization)
  Sender: FDA-Public Use
  Company Number: US-MERCK-0804USA02141

PATIENT
  Sex: Female

DRUGS (1)
  1. SINGULAIR [Suspect]
     Route: 048

REACTIONS (2)
  - AUTOIMMUNE DISORDER [None]
  - VASCULITIS [None]
